FAERS Safety Report 9624046 (Version 1)
Quarter: 2013Q4

REPORT INFORMATION
  Report Type: Spontaneous
  Country: US (occurrence: US)
  Receive Date: 20131015
  Receipt Date: 20131015
  Transmission Date: 20140711
  Serious: No
  Sender: FDA-Public Use
  Company Number: US-BAUSCH-BL-2013-004175

PATIENT
  Sex: Male

DRUGS (2)
  1. LATANOPROST OPHTHALMIC SOLUTION 0.005% [Suspect]
     Indication: GLAUCOMA
     Dosage: 1 DROP IN LEFT EYE; ONCE AT BEDTIME; OPHTHALMIC
     Route: 047
     Dates: end: 20130709
  2. LATANOPROST OPHTHALMIC SOLUTION 0.005% [Suspect]
     Dosage: 1 DROP IN RIGHT EYE; ONCE AT BEDTIME; OPHTHALMIC
     Route: 047
     Dates: end: 20130709

REACTIONS (1)
  - Foreign body sensation in eyes [Unknown]
